FAERS Safety Report 5954856-1 (Version None)
Quarter: 2008Q4

REPORT INFORMATION
  Report Type: 
  Country: None (occurrence: None)
  Receive Date: 20081113
  Receipt Date: 20081113
  Transmission Date: 20090506
  Serious: Yes (Hospitalization, Other)
  Sender: FDA-Public Use
  Company Number: None

PATIENT
  Sex: Male
  Weight: 79.8331 kg

DRUGS (1)
  1. TESTOSTERONE CYPIONATE [Suspect]
     Indication: HYPOGONADISM
     Dosage: 300 MG ONE TIME IM, 4 DOSES
     Route: 030
     Dates: start: 20080908, end: 20081028

REACTIONS (5)
  - ERYTHEMA [None]
  - MYALGIA [None]
  - SYNCOPE [None]
  - TENDERNESS [None]
  - VOMITING [None]
